FAERS Safety Report 8169043-9 (Version None)
Quarter: 2012Q1

REPORT INFORMATION
  Report Type: 
  Country: None (occurrence: None)
  Receive Date: 20120227
  Receipt Date: 20120223
  Transmission Date: 20120608
  Serious: No
  Sender: FDA-Public Use
  Company Number: US-PFIZER INC-2012048690

PATIENT
  Sex: Female
  Weight: 72.562 kg

DRUGS (8)
  1. LYRICA [Suspect]
     Indication: PAIN
     Dosage: 150 MG, 1X/DAY
     Route: 048
  2. LIPITOR [Concomitant]
     Dosage: UNK
  3. CELEBREX [Concomitant]
     Dosage: UNK
  4. PROTONIX [Concomitant]
     Dosage: UNK
  5. NORVASC [Concomitant]
     Indication: HYPERTENSION
     Dosage: UNK
  6. LYRICA [Suspect]
     Indication: NEUROPATHY PERIPHERAL
  7. INSULIN [Concomitant]
     Indication: DIABETES MELLITUS
     Dosage: UNK
  8. ACCUPRIL [Concomitant]
     Dosage: UNK

REACTIONS (6)
  - HYPERSENSITIVITY [None]
  - LARYNGITIS [None]
  - RHINORRHOEA [None]
  - COUGH [None]
  - DYSPNOEA [None]
  - LACRIMATION INCREASED [None]
